FAERS Safety Report 8094319-3 (Version None)
Quarter: 2012Q1

REPORT INFORMATION
  Report Type: 
  Country: None (occurrence: None)
  Receive Date: 20120130
  Receipt Date: 20120125
  Transmission Date: 20120608
  Serious: No
  Sender: FDA-Public Use
  Company Number: US-PFIZER INC-2012021663

PATIENT
  Sex: Female
  Weight: 71.655 kg

DRUGS (2)
  1. ALBUTEROL [Concomitant]
     Indication: ASTHMA
     Dosage: UNK, AS NEEDED
  2. CELEBREX [Suspect]
     Indication: ANTIINFLAMMATORY THERAPY
     Dosage: 200 MG, DAILY
     Route: 048
     Dates: start: 20111101, end: 20120101

REACTIONS (1)
  - DIZZINESS [None]
